FAERS Safety Report 11047241 (Version 3)
Quarter: 2015Q3

REPORT INFORMATION
  Report Type: Spontaneous
  Country: IT (occurrence: IT)
  Receive Date: 20150420
  Receipt Date: 20150924
  Transmission Date: 20151125
  Serious: Yes (Hospitalization)
  Sender: FDA-Public Use
  Company Number: IT-PFIZER INC-2015127316

PATIENT
  Age: 83 Year
  Sex: Male

DRUGS (5)
  1. TRIATEC [Suspect]
     Active Substance: RAMIPRIL
     Indication: HYPERTENSION
     Dosage: 5 MG, DAILY
     Route: 048
     Dates: start: 20110101, end: 20150408
  2. OMNIC [Concomitant]
     Active Substance: TAMSULOSIN HYDROCHLORIDE
     Dosage: UNK
  3. MAGNESIA BISURATA AROMATIC [Suspect]
     Active Substance: CALCIUM CARBONATE\MAGNESIUM CARBONATE\SODIUM BICARBONATE
     Indication: CONSTIPATION
     Dosage: 1 DF, DAILY
     Route: 048
     Dates: start: 20150408, end: 20150408
  4. AVODART [Concomitant]
     Active Substance: DUTASTERIDE
     Dosage: UNK
  5. CARDIOASPIRIN [Concomitant]
     Active Substance: ASPIRIN
     Dosage: UNK

REACTIONS (2)
  - Supraventricular tachycardia [Recovered/Resolved]
  - Hypotension [Recovered/Resolved]

NARRATIVE: CASE EVENT DATE: 20150408
